FAERS Safety Report 7095959-0 (Version None)
Quarter: 2010Q4

REPORT INFORMATION
  Report Type: 
  Country: None (occurrence: None)
  Receive Date: 20101109
  Receipt Date: 20101109
  Transmission Date: 20110411
  Serious: Yes (Life-Threatening, Hospitalization)
  Sender: FDA-Public Use
  Company Number: None

PATIENT
  Age: 75 Year
  Sex: Female
  Weight: 73.2 kg

DRUGS (5)
  1. DABIGATRAN -PRADAXA- 75MG BOEHRINGER INGELHEIM [Suspect]
     Indication: ATRIAL FIBRILLATION
  2. LEVOTHYROXINE [Concomitant]
  3. EFFEXOR [Concomitant]
  4. FUROSEMIDE [Concomitant]
  5. PROTONIX [Concomitant]

REACTIONS (4)
  - DYSPEPSIA [None]
  - GASTROINTESTINAL HAEMORRHAGE [None]
  - HAEMATEMESIS [None]
  - HAEMATOCHEZIA [None]
